FAERS Safety Report 10656516 (Version 2)
Quarter: 2014Q4

REPORT INFORMATION
  Report Type: Spontaneous
  Country: IL (occurrence: IL)
  Receive Date: 20141216
  Receipt Date: 20141223
  Transmission Date: 20150529
  Serious: Yes (Death)
  Sender: FDA-Public Use
  Company Number: US-ASTRAZENECA-2014SE96097

PATIENT
  Age: 101 Day
  Sex: Female

DRUGS (1)
  1. SYNAGIS [Suspect]
     Active Substance: PALIVIZUMAB
     Indication: ANTIVIRAL PROPHYLAXIS
     Route: 030
     Dates: start: 20141102

REACTIONS (6)
  - Dyspnoea [Fatal]
  - Respiratory syncytial virus bronchiolitis [Fatal]
  - Respiratory failure [Fatal]
  - Streptococcal infection [Fatal]
  - Septic shock [Fatal]
  - Pneumococcal infection [Fatal]

NARRATIVE: CASE EVENT DATE: 20141205
